FAERS Safety Report 4833403-1 (Version None)
Quarter: 2005Q4

REPORT INFORMATION
  Report Type: 
  Country: None (occurrence: None)
  Receive Date: 20051118
  Receipt Date: 20051107
  Transmission Date: 20060501
  Serious: No
  Sender: FDA-Public Use
  Company Number: 05H-163-0303463-00

PATIENT
  Age: 73 Year
  Sex: Female

DRUGS (4)
  1. HEPARIN SODIUM INJECTION [Suspect]
     Indication: ANTICOAGULANT THERAPY
     Dosage: 24000 UNIT, EVERY 24 HOURS, INTRAVENOUS; SEE IMAGE
     Route: 042
  2. ENOXAPARIN SODIUM [Suspect]
     Indication: ANTICOAGULANT THERAPY
  3. WARFARIN SODIUM [Concomitant]
  4. TISSUE PLASMINOGEN ACTIVATOR, RECOMBINATIVE (ALTEPLASE) [Concomitant]

REACTIONS (5)
  - CEREBELLAR INFARCTION [None]
  - CEREBROVASCULAR ACCIDENT [None]
  - HEPARIN-INDUCED THROMBOCYTOPENIA [None]
  - ISCHAEMIC CEREBRAL INFARCTION [None]
  - VENOUS THROMBOSIS [None]
